FAERS Safety Report 9858624 (Version 3)
Quarter: 2014Q2

REPORT INFORMATION
  Report Type: Spontaneous
  Country: US (occurrence: None)
  Receive Date: 20140129
  Receipt Date: 20140609
  Transmission Date: 20141212
  Serious: Yes (Death, Life-Threatening, Hospitalization, Other)
  Sender: FDA-Public Use
  Company Number: 2137263

PATIENT
  Age: 75 Year
  Sex: Female
  Weight: 57 kg

DRUGS (41)
  1. VINCRISTINE SULPHATE [Suspect]
     Indication: INFUSION
     Dosage: 1 MG MILLIGRAM(S) (UNKNOWN) INTRAVENOUS (NOT OTHERWISE SPECIFIED)
     Route: 042
     Dates: start: 20131202, end: 20131202
  2. PONATINIB [Suspect]
     Indication: ACUTE LYMPHOCYTIC LEUKAEMIA
     Dosage: 45 MG MILLIGRAM9S), 1 DAY, UNKNOWN
     Route: 048
     Dates: start: 20131205, end: 20131212
  3. HYDROXYUREA [Suspect]
     Indication: PRODUCT USED FOR UNKNOWN INDICATION
     Route: 048
     Dates: start: 20131202, end: 20131203
  4. CIPROFLOXACIN  HYDROCHLORIDE [Concomitant]
  5. DEXTROSE [Concomitant]
  6. ACYCLOVIR [Concomitant]
  7. ALLOPURINOL [Concomitant]
  8. CIPROFLOXACIN [Concomitant]
  9. DIPHENHYDRAMINE HYDROCHLORIDE [Concomitant]
  10. DOCUSATE SODIUM [Concomitant]
  11. DULOXETINE HYDROCHLORIDE [Concomitant]
  12. FENTANYL CITRATE [Concomitant]
  13. LISPRO INSULIN [Concomitant]
  14. LACTULOSE [Concomitant]
  15. LISPRO INSULIN [Concomitant]
  16. MAGNESIUM CITRATE [Concomitant]
  17. METFORMIN HYDROCHLORIDE [Concomitant]
  18. MULTIPLE VITAMINS [Concomitant]
  19. PANTOPRAZOLE SODIUM SESQUIHYDRATE [Concomitant]
  20. PENTAMIDINE ISETHIONATE [Concomitant]
  21. POLYETHYLENE GLYCOL [Concomitant]
  22. POTASSIUM CHLORIDE [Concomitant]
  23. PREDNISONE [Concomitant]
  24. SODIUM BICARBONATE [Concomitant]
  25. HEPARIN SODIUM [Concomitant]
  26. IPRATROPIUM BROMIDE/ALBUTAMOL SULFATE [Concomitant]
  27. GLUCAGON HYDROCHLORIDE [Concomitant]
  28. INSULIN REGULAR [Concomitant]
  29. DEXTROSE IN WATER [Concomitant]
  30. DEXTROSE W/POTASSIUM CHLORIDE/SODIUM CHLORIDE) [Concomitant]
  31. VANCOMYCIN HYDROCHLORIDE [Concomitant]
  32. ETOMIDATE [Concomitant]
  33. HYDROCORTISONE SODIUM SUCCINATE [Concomitant]
  34. METOCLOPRAMIDE HCL [Concomitant]
  35. BLISTEX [Concomitant]
  36. LORAZEPAM [Concomitant]
  37. TRAMADOL HYDROCHLORIDE [Concomitant]
  38. MIDAZOLAM  HYDROCHLORIDE [Concomitant]
  39. ALBUTEROL [Concomitant]
  40. SODIUM CHLORIDE [Concomitant]
  41. MACROGOL [Concomitant]

REACTIONS (20)
  - Multi-organ failure [None]
  - Sepsis [None]
  - Atrial fibrillation [None]
  - Cardiac failure congestive [None]
  - Ileus [None]
  - Respiratory distress [None]
  - Neutropenia [None]
  - Vomiting [None]
  - Constipation [None]
  - Abdominal discomfort [None]
  - Decreased appetite [None]
  - Cardiomegaly [None]
  - Pleural effusion [None]
  - Respiratory failure [None]
  - Hypotension [None]
  - Aspiration [None]
  - General physical health deterioration [None]
  - Renal failure [None]
  - Pancytopenia [None]
  - Pulmonary oedema [None]
